FAERS Safety Report 24530023 (Version 1)
Quarter: 2024Q4

REPORT INFORMATION
  Report Type: Spontaneous
  Country: US (occurrence: None)
  Receive Date: 20241019
  Receipt Date: 20241019
  Transmission Date: 20250114
  Serious: Yes (Hospitalization)
  Sender: Public
  Company Number: None

PATIENT
  Age: 29 Year
  Sex: Female
  Weight: 72 kg

DRUGS (1)
  1. MISOPROSTOL [Suspect]
     Active Substance: MISOPROSTOL
     Indication: Abortion
     Dates: start: 20241018, end: 20241018

REACTIONS (8)
  - Syncope [None]
  - Tremor [None]
  - Dyspnoea [None]
  - Vomiting [None]
  - Vomiting [None]
  - Muscle spasms [None]
  - Haemorrhage [None]
  - Thrombosis [None]

NARRATIVE: CASE EVENT DATE: 20241018
